FAERS Safety Report 4815746-0 (Version None)
Quarter: 2005Q4

REPORT INFORMATION
  Report Type: 
  Country: None (occurrence: None)
  Receive Date: 20051027
  Receipt Date: 20051019
  Transmission Date: 20060501
  Serious: Yes (Life-Threatening)
  Sender: FDA-Public Use
  Company Number: 2005144840

PATIENT
  Age: 79 Year
  Sex: Female

DRUGS (4)
  1. PHENYTOIN SODIUM [Suspect]
     Indication: EPILEPSY
     Dosage: (300 MG), ORAL
     Route: 048
     Dates: end: 20050929
  2. SIMVASTATIN [Concomitant]
  3. VENLAFAXINE HCL [Concomitant]
  4. MOXONIDINE (MOXONIDINE) [Concomitant]

REACTIONS (6)
  - CONFUSIONAL STATE [None]
  - DIZZINESS [None]
  - LEUKOPENIA [None]
  - LIVER DISORDER [None]
  - NYSTAGMUS [None]
  - TREMOR [None]
